FAERS Safety Report 11703779 (Version 2)
Quarter: 2015Q4

REPORT INFORMATION
  Report Type: Spontaneous
  Country: US (occurrence: US)
  Receive Date: 20151106
  Receipt Date: 20151230
  Transmission Date: 20160304
  Serious: No
  Sender: FDA-Public Use
  Company Number: US-009507513-1510USA008390

PATIENT
  Age: 68 Year
  Sex: Female
  Weight: 45.81 kg

DRUGS (3)
  1. EMEND (FOSAPREPITANT DIMEGLUMINE) [Suspect]
     Active Substance: FOSAPREPITANT DIMEGLUMINE
     Dosage: 150 MG, ONCE
     Route: 041
     Dates: start: 20151013, end: 20151013
  2. EMEND (FOSAPREPITANT DIMEGLUMINE) [Suspect]
     Active Substance: FOSAPREPITANT DIMEGLUMINE
     Dosage: 150 MG, ONCE
     Route: 041
     Dates: start: 20151014, end: 20151014
  3. EMEND [Suspect]
     Active Substance: APREPITANT
     Dosage: 80 MG, ONCE
     Route: 048
     Dates: start: 20151014, end: 20151014

REACTIONS (3)
  - Accidental overdose [Unknown]
  - No adverse event [Unknown]
  - Extra dose administered [Unknown]

NARRATIVE: CASE EVENT DATE: 20151014
